FAERS Safety Report 7995742-5 (Version None)
Quarter: 2011Q4

REPORT INFORMATION
  Report Type: 
  Country: None (occurrence: None)
  Receive Date: 20111220
  Receipt Date: 20111213
  Transmission Date: 20120403
  Serious: No
  Sender: FDA-Public Use
  Company Number: US-BAYER-2011-120737

PATIENT
  Age: 58 Year
  Sex: Male

DRUGS (1)
  1. ALEVE-D SINUS + COLD [Suspect]
     Indication: SINUS DISORDER

REACTIONS (2)
  - FEELING ABNORMAL [None]
  - URINE FLOW DECREASED [None]
